FAERS Safety Report 6602519-1 (Version None)
Quarter: 2010Q1

REPORT INFORMATION
  Report Type: 
  Country: None (occurrence: None)
  Receive Date: 20100217
  Receipt Date: 20100202
  Transmission Date: 20100710
  Serious: Yes (Other)
  Sender: FDA-Public Use
  Company Number: 2009BM000231

PATIENT
  Age: 24 Year
  Sex: Female
  Weight: 44.0896 kg

DRUGS (7)
  1. KUVAN [Suspect]
     Indication: PHENYLKETONURIA
     Dosage: 1000 MG;QD;PO; 1000 MG;PO
     Route: 048
     Dates: start: 20090709, end: 20090912
  2. KUVAN [Suspect]
     Indication: PHENYLKETONURIA
     Dosage: 1000 MG;QD;PO; 1000 MG;PO
     Route: 048
     Dates: start: 20091001, end: 20091109
  3. KUVAN [Suspect]
     Indication: PHENYLKETONURIA
     Dosage: 1000 MG;QD;PO; 1000 MG;PO
     Route: 048
     Dates: start: 20091110
  4. CLARITIN [Concomitant]
  5. VITAMIN TAB [Concomitant]
  6. NUTRIENTS WITHOUT PHENYLALANINE [Concomitant]
  7. PHENYLALANINE [Concomitant]

REACTIONS (5)
  - BLIGHTED OVUM [None]
  - DRUG EXPOSURE DURING PREGNANCY [None]
  - HAEMORRHAGE [None]
  - PREGNANCY [None]
  - ROAD TRAFFIC ACCIDENT [None]
